FAERS Safety Report 14303262 (Version 6)
Quarter: 2018Q2

REPORT INFORMATION
  Report Type: Spontaneous
  Country: DE (occurrence: DE)
  Receive Date: 20171219
  Receipt Date: 20180625
  Transmission Date: 20180711
  Serious: Yes (Hospitalization)
  Sender: FDA-Public Use
  Company Number: DE-FERRINGPH-2017FE06057

PATIENT

DRUGS (5)
  1. PUREGON                            /06269503/ [Suspect]
     Active Substance: UROFOLLITROPIN
     Indication: PRODUCT USED FOR UNKNOWN INDICATION
     Route: 058
  2. BREVACTID [Suspect]
     Active Substance: GONADOTROPHIN, CHORIONIC
     Dosage: 5000 IU, ONCE/SINGLE
     Route: 065
     Dates: start: 20160104, end: 20160104
  3. BREVACTID [Suspect]
     Active Substance: GONADOTROPHIN, CHORIONIC
     Indication: INFERTILITY FEMALE
     Dosage: 5000 IU, ONCE/SINGLE
     Route: 065
     Dates: start: 20160321, end: 20160321
  4. ORGALUTRAN [Suspect]
     Active Substance: GANIRELIX ACETATE
     Indication: PRODUCT USED FOR UNKNOWN INDICATION
     Route: 065
  5. BREVACTID [Suspect]
     Active Substance: GONADOTROPHIN, CHORIONIC
     Dosage: 5000 IU, ONCE/SINGLE
     Route: 065
     Dates: start: 20160206, end: 20160206

REACTIONS (1)
  - Generalised tonic-clonic seizure [Recovered/Resolved with Sequelae]

NARRATIVE: CASE EVENT DATE: 20160323
